FAERS Safety Report 5452962-1 (Version None)
Quarter: 2007Q3

REPORT INFORMATION
  Report Type: 
  Country: None (occurrence: None)
  Receive Date: 20070914
  Receipt Date: 20070907
  Transmission Date: 20080115
  Serious: Yes (Other)
  Sender: FDA-Public Use
  Company Number: US-PFIZER INC-2006007527

PATIENT
  Sex: Male

DRUGS (1)
  1. GEODON [Suspect]
     Indication: SCHIZOPHRENIA, PARANOID TYPE

REACTIONS (12)
  - AGITATION [None]
  - ASTHENIA [None]
  - COUGH [None]
  - DIZZINESS [None]
  - DRY MOUTH [None]
  - GINGIVAL DISORDER [None]
  - HAEMATEMESIS [None]
  - INSOMNIA [None]
  - NASOPHARYNGITIS [None]
  - PARALYSIS [None]
  - PYREXIA [None]
  - VOMITING [None]
